FAERS Safety Report 21504863 (Version 1)
Quarter: 2022Q4

REPORT INFORMATION
  Report Type: Spontaneous
  Country: US (occurrence: None)
  Receive Date: 20221025
  Receipt Date: 20221025
  Transmission Date: 20230113
  Serious: No
  Sender: FDA-Public Use
  Company Number: 2022A334512

PATIENT
  Sex: Female
  Weight: 58.1 kg

DRUGS (2)
  1. SYMBICORT [Suspect]
     Active Substance: BUDESONIDE\FORMOTEROL FUMARATE DIHYDRATE
     Indication: Asthma
     Dosage: 160/4.5 2 PUFFS BID
     Route: 055
     Dates: start: 20220919
  2. SYMBICORT [Suspect]
     Active Substance: BUDESONIDE\FORMOTEROL FUMARATE DIHYDRATE
     Indication: Chronic obstructive pulmonary disease
     Dosage: 160/4.5 2 PUFFS BID
     Route: 055
     Dates: start: 20220919

REACTIONS (4)
  - African trypanosomiasis [Unknown]
  - Hypoaesthesia [Unknown]
  - Wrong technique in device usage process [Unknown]
  - Device use issue [Unknown]
